FAERS Safety Report 19846161 (Version 1)
Quarter: 2021Q3

REPORT INFORMATION
  Report Type: Spontaneous
  Country: FR (occurrence: FR)
  Receive Date: 20210917
  Receipt Date: 20210917
  Transmission Date: 20211014
  Serious: Yes (Hospitalization, Other)
  Sender: FDA-Public Use
  Company Number: FR-SA-2021SA302925

PATIENT
  Age: 31 Year
  Sex: Male

DRUGS (3)
  1. RIFADINE [Suspect]
     Active Substance: RIFAMPIN
     Indication: SUPERINFECTION BACTERIAL
     Dosage: 900 MG
     Route: 048
     Dates: start: 20210730, end: 20210813
  2. CIPROFLOXACINE KABI [Suspect]
     Active Substance: CIPROFLOXACIN
     Indication: SUPERINFECTION BACTERIAL
     Dosage: 400 MG
     Route: 048
     Dates: start: 20210730, end: 20210813
  3. VANCOMYCINE MYLAN [VANCOMYCIN HYDROCHLORIDE] [Suspect]
     Active Substance: VANCOMYCIN HYDROCHLORIDE
     Indication: SUPERINFECTION BACTERIAL
     Dosage: 2.4 G
     Route: 048
     Dates: start: 20210719, end: 20210816

REACTIONS (1)
  - Drug reaction with eosinophilia and systemic symptoms [Not Recovered/Not Resolved]

NARRATIVE: CASE EVENT DATE: 20210805
